FAERS Safety Report 9516956 (Version 2)
Quarter: 2013Q4

REPORT INFORMATION
  Report Type: Spontaneous
  Country: US (occurrence: US)
  Receive Date: 20130911
  Receipt Date: 20131018
  Transmission Date: 20140711
  Serious: No
  Sender: FDA-Public Use
  Company Number: US-PFIZER INC-2013260519

PATIENT
  Age: 62 Year
  Sex: Female
  Weight: 48.5 kg

DRUGS (4)
  1. PRISTIQ [Suspect]
     Indication: ANXIETY
     Dosage: 50 MG, 1X/DAY
     Route: 048
     Dates: start: 201303, end: 20130906
  2. PRISTIQ [Suspect]
     Indication: DEPRESSION
     Dosage: 100 MG, ONCE DAILY IN THE MORNING
     Route: 048
     Dates: start: 20130907, end: 20130909
  3. VALIUM [Concomitant]
     Dosage: 5 MG, 3X/DAY
  4. SEROQUEL [Concomitant]
     Dosage: 75 MG, AT NIGHT

REACTIONS (9)
  - Decreased appetite [Unknown]
  - Weight decreased [Unknown]
  - Heart rate increased [Unknown]
  - Sleep disorder [Unknown]
  - Panic attack [Unknown]
  - Musculoskeletal stiffness [Unknown]
  - Blood pressure increased [Unknown]
  - Off label use [Unknown]
  - Drug ineffective for unapproved indication [Unknown]
